FAERS Safety Report 8391010-0 (Version None)
Quarter: 2012Q1

REPORT INFORMATION
  Report Type: 
  Country: None (occurrence: None)
  Receive Date: 20120323
  Receipt Date: 20110308
  Transmission Date: 20120608
  Serious: Yes (Hospitalization)
  Sender: FDA-Public Use
  Company Number: 163-21880-11031248

PATIENT
  Age: 76 Year
  Sex: Male
  Weight: 92.9874 kg

DRUGS (10)
  1. ACETAMINOPHEN [Concomitant]
  2. WARFARIN SODIUM [Concomitant]
  3. BENADRYL [Concomitant]
  4. MUCINEX [Concomitant]
  5. LEVITRA [Concomitant]
  6. VITAMIN B12 [Concomitant]
  7. REVLIMID [Suspect]
     Indication: MYELODYSPLASTIC SYNDROME
     Dosage: 10 MG, 1 IN 1 D, PO ; 10 MG, 1 IN 1 D, PO
     Route: 048
     Dates: start: 20110301
  8. REVLIMID [Suspect]
     Indication: MYELODYSPLASTIC SYNDROME
     Dosage: 10 MG, 1 IN 1 D, PO ; 10 MG, 1 IN 1 D, PO
     Route: 048
     Dates: start: 20100801
  9. CLARITIN [Concomitant]
  10. PENTASA [Concomitant]

REACTIONS (1)
  - BRONCHITIS [None]
